FAERS Safety Report 13677565 (Version 1)
Quarter: 2017Q2

REPORT INFORMATION
  Report Type: Spontaneous
  Country: SE (occurrence: TZ)
  Receive Date: 20170622
  Receipt Date: 20170622
  Transmission Date: 20170830
  Serious: Yes (Other)
  Sender: FDA-Public Use
  Company Number: SE-CIPLA LTD.-2017TZ10980

PATIENT

DRUGS (12)
  1. TENOFOVIR [Suspect]
     Active Substance: TENOFOVIR
     Indication: HIV INFECTION WHO CLINICAL STAGE II
     Dosage: UNK
     Route: 065
  2. NEVIRAPINE. [Suspect]
     Active Substance: NEVIRAPINE
     Dosage: UNK
     Route: 065
  3. RILPIVIRINE [Suspect]
     Active Substance: RILPIVIRINE
     Dosage: UNK
     Route: 065
  4. EMTRICITABINE [Suspect]
     Active Substance: EMTRICITABINE
     Indication: HIV INFECTION WHO CLINICAL STAGE II
     Dosage: UNK
     Route: 065
  5. DIDANOSINE. [Suspect]
     Active Substance: DIDANOSINE
     Indication: HIV INFECTION WHO CLINICAL STAGE II
     Dosage: UNK
     Route: 065
  6. LAMIVUDINE. [Suspect]
     Active Substance: LAMIVUDINE
     Indication: HIV INFECTION WHO CLINICAL STAGE II
     Dosage: UNK, FOR 111.11 MONTHS
     Route: 065
  7. LOPINAVIR [Suspect]
     Active Substance: LOPINAVIR
     Indication: HIV INFECTION WHO CLINICAL STAGE II
     Dosage: UNK
     Route: 065
  8. EFAVIRENZ [Suspect]
     Active Substance: EFAVIRENZ
     Indication: HIV INFECTION WHO CLINICAL STAGE II
     Dosage: UNK, FOR 111.11 MONTHS
     Route: 065
  9. ABACAVIR. [Suspect]
     Active Substance: ABACAVIR
     Indication: HIV INFECTION WHO CLINICAL STAGE II
     Dosage: UNK
     Route: 065
  10. EFAVIRENZ [Suspect]
     Active Substance: EFAVIRENZ
     Dosage: UNK, HAART REGIMEN
     Route: 065
  11. STAVUDINE. [Suspect]
     Active Substance: STAVUDINE
     Indication: HIV INFECTION WHO CLINICAL STAGE II
     Dosage: UNK, FOR 111.11 MONTHS
     Route: 065
  12. RITONAVIR. [Suspect]
     Active Substance: RITONAVIR
     Indication: HIV INFECTION WHO CLINICAL STAGE II
     Dosage: UNK
     Route: 065

REACTIONS (2)
  - Drug resistance [Unknown]
  - Treatment failure [Unknown]
